FAERS Safety Report 16685553 (Version 1)
Quarter: 2019Q3

REPORT INFORMATION
  Report Type: Spontaneous
  Country: US (occurrence: US)
  Receive Date: 20190809
  Receipt Date: 20190809
  Transmission Date: 20191004
  Serious: No
  Sender: FDA-Public Use
  Company Number: US-SA-2015SA077852

PATIENT
  Age: 69 Year
  Sex: Female

DRUGS (2)
  1. LANTUS SOLOSTAR [Suspect]
     Active Substance: INSULIN GLARGINE
     Indication: TYPE 2 DIABETES MELLITUS
     Dosage: 15 U, QD
     Route: 065
     Dates: start: 201505
  2. LANTUS SOLOSTAR [Suspect]
     Active Substance: INSULIN GLARGINE
     Dosage: 20 U, BID
     Route: 065

REACTIONS (7)
  - Inappropriate schedule of product administration [Unknown]
  - Injection site bruising [Unknown]
  - Glycosylated haemoglobin increased [Unknown]
  - Joint swelling [Unknown]
  - Visual impairment [Unknown]
  - Injection site discolouration [Unknown]
  - Device operational issue [Unknown]
